FAERS Safety Report 23342818 (Version 2)
Quarter: 2024Q1

REPORT INFORMATION
  Report Type: Spontaneous
  Country: KR (occurrence: KR)
  Receive Date: 20231227
  Receipt Date: 20240104
  Transmission Date: 20240409
  Serious: Yes (Death, Other)
  Sender: FDA-Public Use
  Company Number: KR-ELI_LILLY_AND_COMPANY-KR202312013618

PATIENT
  Sex: Male

DRUGS (34)
  1. CYRAMZA [Suspect]
     Active Substance: RAMUCIRUMAB
     Indication: Product used for unknown indication
     Dosage: 800 MG, UNKNOWN
     Route: 042
     Dates: start: 20231204, end: 20231204
  2. LASIX [Concomitant]
     Active Substance: FUROSEMIDE
     Indication: Product used for unknown indication
     Dosage: UNK
     Dates: start: 20231120
  3. MEROPENEM [Concomitant]
     Active Substance: MEROPENEM
     Indication: Product used for unknown indication
     Dosage: 1 G
     Dates: start: 20231123
  4. MEROPENEM [Concomitant]
     Active Substance: MEROPENEM
     Dosage: 1 UNK
     Dates: start: 20231124
  5. MEROPENEM [Concomitant]
     Active Substance: MEROPENEM
     Dosage: 1 UNK
     Dates: start: 20231211
  6. MORPHINE SULFATE [Concomitant]
     Active Substance: MORPHINE SULFATE
     Indication: Product used for unknown indication
     Dosage: 10MG/ML VIAL
     Dates: start: 20231209, end: 20231210
  7. ROCURONIUM BROMIDE [Concomitant]
     Active Substance: ROCURONIUM BROMIDE
     Indication: Product used for unknown indication
     Dosage: UNK
     Dates: start: 20231211
  8. HYDROCORTISONE SODIUM SUCCINATE [Concomitant]
     Active Substance: HYDROCORTISONE SODIUM SUCCINATE
     Indication: Product used for unknown indication
     Dosage: UNK
     Dates: start: 20231211
  9. HYDROCORTISONE SODIUM SUCCINATE [Concomitant]
     Active Substance: HYDROCORTISONE SODIUM SUCCINATE
     Dosage: UNK
     Dates: start: 20231211
  10. TECONIN [Concomitant]
     Indication: Product used for unknown indication
     Dosage: 400 MG
     Dates: start: 20231124
  11. TECONIN [Concomitant]
     Dosage: 400 MG
     Dates: start: 20231211
  12. NORPIN [NOREPINEPHRINE] [Concomitant]
     Indication: Product used for unknown indication
     Dosage: UNK
     Dates: start: 20231211
  13. GRASIN [Concomitant]
     Indication: Product used for unknown indication
     Dosage: 300 UNK
     Dates: start: 20231210, end: 20231211
  14. ETOMIDATE [Concomitant]
     Active Substance: ETOMIDATE
     Indication: Product used for unknown indication
     Dosage: UNK
     Dates: start: 20231211
  15. SODIUM BICARBONATE [Concomitant]
     Active Substance: SODIUM BICARBONATE
     Indication: Product used for unknown indication
     Dosage: 8.4 %
     Dates: start: 20231211
  16. SODIUM BICARBONATE [Concomitant]
     Active Substance: SODIUM BICARBONATE
     Dosage: 8.4 UNK
     Dates: start: 20231211
  17. HUMULIN R [Concomitant]
     Active Substance: INSULIN HUMAN
     Indication: Product used for unknown indication
     Dosage: 100UNIT
     Dates: start: 20231211
  18. HUMULIN N [Concomitant]
     Active Substance: INSULIN HUMAN
     Indication: Product used for unknown indication
     Dosage: 100U/ML
     Dates: start: 20231128, end: 20231201
  19. NADOXOLOL HYDROCHLORIDE [Concomitant]
     Indication: Product used for unknown indication
     Dosage: UNK
     Dates: start: 20231210
  20. NADOXOLOL HYDROCHLORIDE [Concomitant]
     Dosage: UNK
     Dates: start: 20231210, end: 20231211
  21. COTRIM [Concomitant]
     Active Substance: SULFAMETHOXAZOLE\TRIMETHOPRIM
     Indication: Product used for unknown indication
     Dosage: UNK
     Dates: start: 20231210, end: 20231211
  22. PIPERACILLIN SODIUM\TAZOBACTAM SODIUM [Concomitant]
     Active Substance: PIPERACILLIN SODIUM\TAZOBACTAM SODIUM
     Indication: Product used for unknown indication
     Dosage: 4.5 MG
     Dates: start: 20231116
  23. PIPERACILLIN SODIUM\TAZOBACTAM SODIUM [Concomitant]
     Active Substance: PIPERACILLIN SODIUM\TAZOBACTAM SODIUM
     Dosage: 4.5 MG
     Dates: start: 20231116
  24. PIPERACILLIN SODIUM\TAZOBACTAM SODIUM [Concomitant]
     Active Substance: PIPERACILLIN SODIUM\TAZOBACTAM SODIUM
     Dosage: 4.5 MG
     Dates: start: 20231117, end: 20231122
  25. SODIUM CHLORIDE [Concomitant]
     Active Substance: SODIUM CHLORIDE
     Indication: Product used for unknown indication
     Dosage: UNK
     Dates: start: 20231117
  26. SODIUM CHLORIDE [Concomitant]
     Active Substance: SODIUM CHLORIDE
     Dosage: UNK
     Dates: start: 20231211
  27. SODIUM CHLORIDE [Concomitant]
     Active Substance: SODIUM CHLORIDE
     Dosage: UNK
     Dates: start: 20231116, end: 20231128
  28. SODIUM CHLORIDE [Concomitant]
     Active Substance: SODIUM CHLORIDE
     Dosage: UNK
     Dates: start: 20231116, end: 20231211
  29. SODIUM CHLORIDE [Concomitant]
     Active Substance: SODIUM CHLORIDE
     Dosage: UNK
     Dates: start: 20231123, end: 20231211
  30. SODIUM CHLORIDE [Concomitant]
     Active Substance: SODIUM CHLORIDE
     Dosage: UNK
     Dates: start: 20231211
  31. SODIUM CHLORIDE [Concomitant]
     Active Substance: SODIUM CHLORIDE
     Dosage: UNK
     Dates: start: 20231203
  32. WINUF [Concomitant]
     Indication: Product used for unknown indication
     Dosage: UNK
     Dates: start: 20231206, end: 20231211
  33. WINUF [Concomitant]
     Dosage: UNK
     Dates: start: 20231117
  34. TAMIPOOL [ASCORBIC ACID;BIOTIN;CYANOCOBALAMIN [Concomitant]
     Indication: Product used for unknown indication
     Dosage: UNK
     Dates: start: 20231118, end: 20231211

REACTIONS (2)
  - Septic shock [Fatal]
  - Lung neoplasm malignant [Unknown]
